FAERS Safety Report 9610995 (Version 1)
Quarter: 2013Q4

REPORT INFORMATION
  Report Type: Spontaneous
  Country: GB (occurrence: GB)
  Receive Date: 20131009
  Receipt Date: 20131009
  Transmission Date: 20140711
  Serious: Yes (Other)
  Sender: FDA-Public Use
  Company Number: GB-TEVA-436136ISR

PATIENT
  Sex: Female

DRUGS (2)
  1. TRIMETHOPRIM [Suspect]
  2. MAXTREX [Suspect]
     Indication: RHEUMATIC DISORDER
     Dosage: 20 MG, WEEKLY

REACTIONS (1)
  - Pancytopenia [Unknown]
